FAERS Safety Report 8804908 (Version 2)
Quarter: 2012Q4

REPORT INFORMATION
  Report Type: Report from Study
  Country: FR (occurrence: FR)
  Receive Date: 20120924
  Receipt Date: 20121008
  Transmission Date: 20130627
  Serious: Yes (Hospitalization)
  Sender: FDA-Public Use
  Company Number: FR-ROCHE-1125008

PATIENT
  Age: 51 None
  Sex: Female
  Weight: 50 kg

DRUGS (23)
  1. ROACTEMRA [Suspect]
     Indication: RHEUMATOID ARTHRITIS
     Route: 042
     Dates: start: 20100625
  2. ROACTEMRA [Suspect]
     Route: 065
     Dates: start: 20100726
  3. ROACTEMRA [Suspect]
     Route: 065
     Dates: start: 20100824
  4. ROACTEMRA [Suspect]
     Route: 065
     Dates: start: 20100921
  5. ROACTEMRA [Suspect]
     Route: 065
     Dates: start: 20101019
  6. ROACTEMRA [Suspect]
     Route: 065
     Dates: start: 20101130
  7. ROACTEMRA [Suspect]
     Route: 065
     Dates: start: 20110112
  8. ROACTEMRA [Suspect]
     Route: 065
     Dates: start: 20110210
  9. ROACTEMRA [Suspect]
     Route: 065
     Dates: start: 20110310
  10. ROACTEMRA [Suspect]
     Route: 065
     Dates: start: 20110407
  11. ROACTEMRA [Suspect]
     Route: 065
     Dates: start: 20110606
  12. ROACTEMRA [Suspect]
     Route: 065
     Dates: start: 20111028
  13. ROACTEMRA [Suspect]
     Route: 065
     Dates: start: 20111125
  14. CORTANCYL [Concomitant]
     Route: 065
     Dates: start: 200301
  15. CORTANCYL [Concomitant]
     Route: 065
     Dates: start: 20101130
  16. CORTANCYL [Concomitant]
     Route: 065
     Dates: start: 20111125
  17. ACTONEL [Concomitant]
     Dosage: 1 DF/week
     Route: 065
  18. DIFFU K [Concomitant]
     Route: 065
  19. ACTONEL [Concomitant]
  20. SPECIAFOLDINE [Concomitant]
     Route: 065
  21. OMEPRAZOLE [Concomitant]
     Route: 065
  22. MOPRAL (FRANCE) [Concomitant]
     Route: 065
  23. IXPRIM [Concomitant]
     Dosage: 6-8 tablet per day
     Route: 065

REACTIONS (9)
  - Osteotomy [Recovered/Resolved]
  - Tachycardia [Recovered/Resolved]
  - Productive cough [Recovered/Resolved]
  - Urinary tract infection bacterial [Recovered/Resolved]
  - Urinary tract infection [Recovered/Resolved]
  - Rash macular [Recovered/Resolved]
  - Oropharyngeal pain [Recovered/Resolved]
  - Pruritus generalised [Recovered/Resolved]
  - Petechiae [Recovered/Resolved]
